FAERS Safety Report 18405373 (Version 1)
Quarter: 2020Q4

REPORT INFORMATION
  Report Type: Report from Study
  Country: US (occurrence: US)
  Receive Date: 20201020
  Receipt Date: 20201020
  Transmission Date: 20210114
  Serious: Yes (Hospitalization, Other)
  Sender: FDA-Public Use
  Company Number: US-GILEAD-2020-0496268

PATIENT
  Age: 39 Year
  Sex: Female

DRUGS (16)
  1. AZITHROMYCIN ANHYDROUS. [Concomitant]
     Active Substance: AZITHROMYCIN ANHYDROUS
  2. ENSURE [NUTRIENTS NOS] [Concomitant]
  3. ALBUTEROL [SALBUTAMOL] [Concomitant]
     Active Substance: ALBUTEROL
  4. AZTREONAM LYSINE [Suspect]
     Active Substance: AZTREONAM LYSINE
     Indication: CYSTIC FIBROSIS
     Dosage: 75 MG, TID, QOM
     Route: 055
  5. CREON [Concomitant]
     Active Substance: PANCRELIPASE AMYLASE\PANCRELIPASE LIPASE\PANCRELIPASE PROTEASE
  6. NORCO [Concomitant]
     Active Substance: ACETAMINOPHEN\HYDROCODONE BITARTRATE
  7. COLISTIMETHATE SODIUM. [Concomitant]
     Active Substance: COLISTIMETHATE SODIUM
  8. PHYTONADIONE. [Concomitant]
     Active Substance: PHYTONADIONE
  9. VITAMIN E NOS [Concomitant]
     Active Substance: .ALPHA.-TOCOPHEROL
  10. PULMOZYME [Concomitant]
     Active Substance: DORNASE ALFA
  11. ERGOCALCIFEROL. [Concomitant]
     Active Substance: ERGOCALCIFEROL
  12. TRIKAFTA [Concomitant]
     Active Substance: ELEXACAFTOR\IVACAFTOR\TEZACAFTOR
  13. AZTREONAM LYSINE [Suspect]
     Active Substance: AZTREONAM LYSINE
     Indication: PSEUDOMONAS INFECTION
  14. PROVENTIL [Concomitant]
     Active Substance: ALBUTEROL
  15. SYMBICORT [Concomitant]
     Active Substance: BUDESONIDE\FORMOTEROL FUMARATE DIHYDRATE
  16. VITAMIN A [RETINOL] [Concomitant]
     Active Substance: RETINOL

REACTIONS (7)
  - Road traffic accident [Unknown]
  - Back pain [Not Recovered/Not Resolved]
  - Quality of life decreased [Not Recovered/Not Resolved]
  - Pulmonary function test increased [Unknown]
  - Hospitalisation [Not Recovered/Not Resolved]
  - Depression [Unknown]
  - Self-injurious ideation [Recovered/Resolved]

NARRATIVE: CASE EVENT DATE: 202007
